FAERS Safety Report 6310041-5 (Version None)
Quarter: 2009Q3

REPORT INFORMATION
  Report Type: 
  Country: None (occurrence: None)
  Receive Date: 20090814
  Receipt Date: 20090807
  Transmission Date: 20100115
  Serious: Yes (Other)
  Sender: FDA-Public Use
  Company Number: US-AVENTIS-200917160US

PATIENT
  Sex: Female

DRUGS (3)
  1. LANTUS [Suspect]
     Dosage: DOSE: 15 UNITS ON SSI
     Route: 058
     Dates: start: 20080701
  2. LANTUS [Suspect]
     Dosage: DOSE: UNK
     Route: 058
  3. REGULAR INSULIN [Concomitant]
     Dosage: DOSE: UNK

REACTIONS (3)
  - FALL [None]
  - JOINT INJURY [None]
  - ROAD TRAFFIC ACCIDENT [None]
